FAERS Safety Report 6628720-9 (Version None)
Quarter: 2010Q1

REPORT INFORMATION
  Report Type: 
  Country: None (occurrence: None)
  Receive Date: 20100225
  Receipt Date: 20090422
  Transmission Date: 20100710
  Serious: Yes (Other)
  Sender: FDA-Public Use
  Company Number: 628942

PATIENT
  Sex: Male
  Weight: 67.6 kg

DRUGS (1)
  1. ACCUTANE [Suspect]
     Indication: ACNE
     Dosage: 40 MG 1 PER 2 DAY
     Dates: start: 19990909, end: 20030601

REACTIONS (6)
  - ALOPECIA SCARRING [None]
  - CHEILITIS [None]
  - COLITIS ULCERATIVE [None]
  - DEPRESSION [None]
  - INFLAMMATORY BOWEL DISEASE [None]
  - MELANOCYTIC NAEVUS [None]
